FAERS Safety Report 8798960 (Version 2)
Quarter: 2012Q4

REPORT INFORMATION
  Report Type: 
  Country: US (occurrence: US)
  Receive Date: 20120920
  Receipt Date: 20121005
  Transmission Date: 20130627
  Serious: Yes (Other)
  Sender: FDA-Public Use
  Company Number: US-SANOFI-AVENTIS-2012SA066755

PATIENT
  Age: 68 Year
  Sex: Male
  Weight: 84 kg

DRUGS (4)
  1. PLAVIX [Suspect]
     Route: 065
  2. ANTINEOPLASTIC AGENTS [Suspect]
     Indication: CHRONIC MYELOGENOUS LEUKEMIA
     Dosage: 50 mg and 20 mg
     Route: 048
     Dates: start: 20080612
  3. METOPROLOL [Suspect]
     Route: 065
  4. ATORVASTATIN [Suspect]
     Route: 065

REACTIONS (1)
  - Pleural effusion [Unknown]
